FAERS Safety Report 6887189-X (Version None)
Quarter: 2010Q3

REPORT INFORMATION
  Report Type: 
  Country: None (occurrence: None)
  Receive Date: 20100730
  Receipt Date: 20100629
  Transmission Date: 20110219
  Serious: Yes (Other)
  Sender: FDA-Public Use
  Company Number: CO-PFIZER INC-2009311743

PATIENT
  Age: 10 Year
  Sex: Female

DRUGS (1)
  1. GENOTROPIN [Suspect]
     Indication: GROWTH RETARDATION
     Dosage: 1.3 MG, 1X/DAY
     Route: 030
     Dates: start: 20080101

REACTIONS (6)
  - ARTHRALGIA [None]
  - HAIR GROWTH ABNORMAL [None]
  - HEADACHE [None]
  - INCORRECT ROUTE OF DRUG ADMINISTRATION [None]
  - JAW DISORDER [None]
  - SKIN DISCOLOURATION [None]
